FAERS Safety Report 22209129 (Version 1)
Quarter: 2023Q2

REPORT INFORMATION
  Report Type: Spontaneous
  Country: CN (occurrence: CN)
  Receive Date: 20230413
  Receipt Date: 20230413
  Transmission Date: 20230722
  Serious: Yes (Life-Threatening, Other)
  Sender: FDA-Public Use
  Company Number: CN-TAKEDA-2023TUS037092

PATIENT
  Age: 14 Year
  Sex: Female

DRUGS (1)
  1. ADCETRIS [Suspect]
     Active Substance: BRENTUXIMAB VEDOTIN
     Indication: Hodgkin^s disease
     Dosage: 1.8 MILLIGRAM/KILOGRAM, Q3WEEKS
     Route: 042

REACTIONS (4)
  - Hypersensitivity [Unknown]
  - Pneumonia [Unknown]
  - Febrile neutropenia [Unknown]
  - Neutropenia [Unknown]
